FAERS Safety Report 21859404 (Version 1)
Quarter: 2023Q1

REPORT INFORMATION
  Report Type: Other
  Country: US (occurrence: None)
  Receive Date: 20230113
  Receipt Date: 20230113
  Transmission Date: 20230417
  Serious: Yes (Death)
  Sender: FDA-Public Use
  Company Number: US-ROCHE-3263306

PATIENT

DRUGS (3)
  1. RITUXIMAB [Suspect]
     Active Substance: RITUXIMAB
     Indication: Follicular lymphoma
     Dosage: RITUXIMAB + LENALIDOMIDE (R^2) FOR 12 CYCLES OF 28 D EACH.
     Route: 065
  2. LENALIDOMIDE [Suspect]
     Active Substance: LENALIDOMIDE
     Indication: Follicular lymphoma
     Dosage: RITUXIMAB + LENALIDOMIDE (R^2) FOR 12 CYCLES OF 28 D EACH.
     Route: 065
  3. EPCORITAMAB [Suspect]
     Active Substance: EPCORITAMAB
     Indication: Follicular lymphoma
     Dosage: FOR 12 CYCLES OF 28 D EACH. EPCORITAMAB WAS ADMINISTERED QW IN CYCLES 1-2 AND Q4W THEREAFTER, FOR UP
     Route: 058

REACTIONS (1)
  - COVID-19 pneumonia [Fatal]
